FAERS Safety Report 8454321-6 (Version None)
Quarter: 2012Q2

REPORT INFORMATION
  Report Type: 
  Country: None (occurrence: None)
  Receive Date: 20120620
  Receipt Date: 20120611
  Transmission Date: 20120825
  Serious: Yes (Other)
  Sender: FDA-Public Use
  Company Number: TR-AMGEN-TURSP2012015749

PATIENT
  Age: 51 Year
  Sex: Male

DRUGS (2)
  1. HIPERSAR PLUS [Concomitant]
     Indication: HYPERTENSION
     Dosage: ONCE A DAY
     Route: 048
  2. ENBREL [Suspect]
     Indication: ANKYLOSING SPONDYLITIS
     Dosage: 50 MG, WEEKLY
     Route: 058
     Dates: start: 20110614, end: 20120221

REACTIONS (4)
  - BACK PAIN [None]
  - CARDIAC FAILURE [None]
  - DYSPNOEA [None]
  - DIABETES MELLITUS [None]
